FAERS Safety Report 23048923 (Version 1)
Quarter: 2023Q4

REPORT INFORMATION
  Report Type: Spontaneous
  Country: US (occurrence: US)
  Receive Date: 20231010
  Receipt Date: 20231010
  Transmission Date: 20240110
  Serious: Yes (Death, Hospitalization, Other)
  Sender: FDA-Public Use
  Company Number: US-SA-2023SA303248

PATIENT
  Age: 68 Year
  Sex: Female

DRUGS (1)
  1. DOCETAXEL [Suspect]
     Active Substance: DOCETAXEL
     Indication: Non-small cell lung cancer metastatic
     Dosage: UNK

REACTIONS (9)
  - Hypereosinophilic syndrome [Fatal]
  - Dyspnoea [Fatal]
  - Angina pectoris [Fatal]
  - Encephalopathy [Fatal]
  - Hepatomegaly [Fatal]
  - Cerebral infarction [Fatal]
  - Cerebral haemorrhage [Fatal]
  - Cardiac arrest [Fatal]
  - Leukostasis syndrome [Unknown]
